FAERS Safety Report 25779021 (Version 1)
Quarter: 2025Q3

REPORT INFORMATION
  Report Type: Spontaneous
  Country: US (occurrence: US)
  Receive Date: 20250909
  Receipt Date: 20250909
  Transmission Date: 20251021
  Serious: No
  Sender: MERCK SHARP & DOHME LLC
  Company Number: US-009507513-2322261

PATIENT
  Age: 7 Year
  Sex: Male

DRUGS (13)
  1. CEFTOLOZANE SULFATE\TAZOBACTAM SODIUM [Suspect]
     Active Substance: CEFTOLOZANE SULFATE\TAZOBACTAM SODIUM
     Indication: Thermal burn
  2. CEFEPIME [Concomitant]
     Active Substance: CEFEPIME HYDROCHLORIDE
     Indication: Thermal burn
  3. MICAFUNGIN [Concomitant]
     Active Substance: MICAFUNGIN SODIUM
     Indication: Thermal burn
  4. ampicillin (AMP) [Concomitant]
     Indication: Thermal burn
  5. ceftazidime-avibactam (CZA) [Concomitant]
     Indication: Thermal burn
  6. ciprofloxacin (CIP) [Concomitant]
     Indication: Thermal burn
  7. VANCOMYCIN [Concomitant]
     Active Substance: VANCOMYCIN
     Indication: Thermal burn
  8. metronidazole (MTZ) [Concomitant]
     Indication: Thermal burn
  9. trimethoprim-sulfamethoxazole (SXT) [Concomitant]
     Indication: Thermal burn
  10. tobramycin (TOB) [Concomitant]
     Indication: Thermal burn
  11. amphotericin B (AMB) [Concomitant]
     Indication: Thermal burn
  12. voriconazole (VRC) [Concomitant]
     Indication: Thermal burn
  13. CEFIDEROCOL [Concomitant]
     Active Substance: CEFIDEROCOL
     Indication: Thermal burn
     Dosage: (DAY 16-23)
     Route: 042

REACTIONS (1)
  - Product use in unapproved indication [Unknown]
